FAERS Safety Report 17186312 (Version 2)
Quarter: 2019Q4

REPORT INFORMATION
  Report Type: Spontaneous
  Country: FR (occurrence: FR)
  Receive Date: 20191220
  Receipt Date: 20191227
  Transmission Date: 20200122
  Serious: Yes (Hospitalization, Other)
  Sender: FDA-Public Use
  Company Number: FR-PFIZER INC-2019548370

PATIENT
  Age: 27 Year
  Sex: Male

DRUGS (18)
  1. AMIKACIN. [Suspect]
     Active Substance: AMIKACIN
     Indication: APLASTIC ANAEMIA
     Dosage: 15 MG/KG, DAILY (STARTED ON DAY 5, FOR 4 DAYS)
     Dates: start: 201509
  2. PREDNISONE. [Suspect]
     Active Substance: PREDNISONE
     Indication: APLASTIC ANAEMIA
     Dosage: 40 MG, DAILY
     Route: 048
     Dates: start: 201509
  3. AMPHOTERICIN B, LIPOSOME [Concomitant]
     Active Substance: AMPHOTERICIN B
     Dosage: 3 MG/KG, DAILY
     Dates: start: 2015, end: 2015
  4. VORICONAZOLE. [Concomitant]
     Active Substance: VORICONAZOLE
     Dosage: UNK
     Route: 048
     Dates: start: 2015
  5. LEVOFLOXACIN. [Suspect]
     Active Substance: LEVOFLOXACIN
     Indication: APLASTIC ANAEMIA
     Dosage: UNK
     Dates: start: 201509, end: 2015
  6. AMIKACIN. [Suspect]
     Active Substance: AMIKACIN
     Indication: FEBRILE NEUTROPENIA
  7. CYCLOPHOSPHAMIDE. [Concomitant]
     Active Substance: CYCLOPHOSPHAMIDE
     Indication: BONE MARROW CONDITIONING REGIMEN
     Dosage: 300 MG/M2, UNK
     Route: 042
     Dates: start: 2015
  8. VORICONAZOLE. [Concomitant]
     Active Substance: VORICONAZOLE
     Dosage: 4 MG/KG, 2X/DAY
     Route: 042
     Dates: start: 2015, end: 2015
  9. FLUDARABINE [Concomitant]
     Active Substance: FLUDARABINE PHOSPHATE
     Indication: BONE MARROW CONDITIONING REGIMEN
     Dosage: 30 MG/M2, UNK (FROM DAY 35 TO 38)
     Dates: start: 2015
  10. PIPERACILLIN/TAZOBACTAM [Suspect]
     Active Substance: PIPERACILLIN SODIUM\TAZOBACTAM SODIUM
     Indication: APLASTIC ANAEMIA
     Dosage: 16 G, DAILY (STARTED ON DAY 5, FOR 10 DAYS)
     Dates: start: 201509, end: 201509
  11. PIPERACILLIN/TAZOBACTAM [Suspect]
     Active Substance: PIPERACILLIN SODIUM\TAZOBACTAM SODIUM
     Indication: FEBRILE NEUTROPENIA
     Dosage: UNK
     Dates: start: 201509, end: 2015
  12. MEROPENEM. [Suspect]
     Active Substance: MEROPENEM
     Indication: APLASTIC ANAEMIA
     Dosage: 3 G, DAILY
     Dates: start: 2015
  13. MEROPENEM. [Suspect]
     Active Substance: MEROPENEM
     Indication: PYREXIA
  14. CASPOFUNGIN [Concomitant]
     Active Substance: CASPOFUNGIN
     Indication: ANTIFUNGAL TREATMENT
     Dosage: 70 MG, DAILY (LOADING DOSE)
     Dates: start: 2015, end: 2015
  15. VORICONAZOLE. [Concomitant]
     Active Substance: VORICONAZOLE
     Dosage: 6 MG/KG, 2X/DAY (FIRST DAY)
     Route: 042
     Dates: start: 2015, end: 2015
  16. CASPOFUNGIN [Concomitant]
     Active Substance: CASPOFUNGIN
     Dosage: 50 MG, DAILY
     Dates: start: 2015
  17. CYCLOSPORINE. [Concomitant]
     Active Substance: CYCLOSPORINE
     Indication: GRAFT VERSUS HOST DISEASE
     Dosage: UNK
     Dates: start: 2015
  18. ALEMTUZUMAB [Concomitant]
     Active Substance: ALEMTUZUMAB
     Indication: BONE MARROW CONDITIONING REGIMEN
     Dosage: 20 MG, UNK (FROM DAY 36 TO 39)
     Route: 042
     Dates: start: 2015

REACTIONS (4)
  - Sepsis [Recovered/Resolved]
  - Geotrichum infection [Recovered/Resolved]
  - Product use in unapproved indication [Unknown]
  - Off label use [Unknown]
